FAERS Safety Report 5122257-4 (Version None)
Quarter: 2006Q4

REPORT INFORMATION
  Report Type: 
  Country: None (occurrence: None)
  Receive Date: 20061003
  Receipt Date: 20060925
  Transmission Date: 20070319
  Serious: Yes (Other)
  Sender: FDA-Public Use
  Company Number: 146581USA

PATIENT
  Age: 57 Year
  Sex: Female

DRUGS (14)
  1. COPAXONE [Suspect]
     Indication: MULTIPLE SCLEROSIS
     Dosage: 20 MG (20 MG, ONCE A DAY), SUBCUTANEOUS
     Route: 058
     Dates: start: 20030101
  2. AMANTADINE HCL [Concomitant]
  3. TIZANIDINE HCL [Concomitant]
  4. BACLOFEN [Concomitant]
  5. CLONAZEPAM [Concomitant]
  6. TOLTERODINE [Concomitant]
  7. VENLAFAXIINE HCL [Concomitant]
  8. ESOMEPRAZOLE MAGNESIUM [Concomitant]
  9. CENTRUM [Concomitant]
  10. VITAMIN B COMPLEX CAP [Concomitant]
  11. ASCORBIC ACID [Concomitant]
  12. ERGOCALCIFEROL [Concomitant]
  13. CALCIUM GLUCONATE [Concomitant]
  14. EXCEDRIN (MIGRAINE) [Concomitant]

REACTIONS (2)
  - B-CELL LYMPHOMA [None]
  - NEUROFIBROMA [None]
